FAERS Safety Report 9763050 (Version 5)
Quarter: 2014Q1

REPORT INFORMATION
  Report Type: Spontaneous
  Country: US (occurrence: US)
  Receive Date: 20131216
  Receipt Date: 20140326
  Transmission Date: 20141002
  Serious: No
  Sender: FDA-Public Use
  Company Number: US-BIOGENIDEC-2013BI105333

PATIENT
  Age: 48 Year
  Sex: Female

DRUGS (8)
  1. TECFIDERA [Suspect]
     Indication: MULTIPLE SCLEROSIS
     Route: 048
     Dates: start: 20131005
  2. TECFIDERA [Suspect]
     Indication: MULTIPLE SCLEROSIS
     Route: 048
     Dates: start: 20140228
  3. AMPYRA [Concomitant]
     Indication: MULTIPLE SCLEROSIS
     Dates: start: 2013
  4. BUSPIRONE [Concomitant]
  5. GABAPENTIN [Concomitant]
  6. VITAMIN B12 [Concomitant]
  7. VIT D3 [Concomitant]
  8. CYMBALTA [Concomitant]

REACTIONS (9)
  - Nasopharyngitis [Recovered/Resolved]
  - Constipation [Not Recovered/Not Resolved]
  - Laryngitis [Recovered/Resolved]
  - Depressed mood [Unknown]
  - Muscular weakness [Unknown]
  - Flushing [Not Recovered/Not Resolved]
  - Abdominal pain [Recovered/Resolved]
  - Diarrhoea [Recovered/Resolved]
  - Multiple sclerosis relapse [Unknown]
